FAERS Safety Report 18903157 (Version 3)
Quarter: 2021Q1

REPORT INFORMATION
  Report Type: Report from Study
  Country: BR (occurrence: BR)
  Receive Date: 20210217
  Receipt Date: 20210324
  Transmission Date: 20210420
  Serious: Yes (Other)
  Sender: FDA-Public Use
  Company Number: NVSC2021BR031262

PATIENT
  Sex: Female
  Weight: 62 kg

DRUGS (8)
  1. CONCOR [Concomitant]
     Active Substance: BISOPROLOL FUMARATE
     Indication: HYPERTENSION
     Dosage: 1 DF, QD (1 YEAR AND A HALF AGO)
     Route: 048
  2. DIOVAN [Suspect]
     Active Substance: VALSARTAN
     Dosage: 160 MG, QD (IN THE MORNING)(START DATE: 2 YEARS AGO)
     Route: 048
  3. SULPAN [Concomitant]
     Active Substance: BROMAZEPAM\SULPIRIDE
     Indication: ANXIETY
     Dosage: 1 DF, QD(ONCE A DAY (AT NIGHT)(START DATE: 2 YEARS AGO)
     Route: 048
  4. DIOVAN [Suspect]
     Active Substance: VALSARTAN
     Dosage: 80 MG(EVERY 12 HOURS)(START DATE: 4 YEARS AGO)(STOP DATE: 2 YEARS AGO)
     Route: 048
  5. INDAPEN [Concomitant]
     Active Substance: INDAPAMIDE
     Indication: HYPERTENSION
     Dosage: 1 DF, QD (START DATE: BEFORE DIOVAN)
     Route: 048
  6. DIOVAN [Suspect]
     Active Substance: VALSARTAN
     Indication: HYPERTENSION
     Dosage: 80 MG, BID(1 YEAR AGO)(AFTER LUNCH AND ONE AT NIGHT)
     Route: 048
  7. DUSPATALIN [Concomitant]
     Active Substance: MEBEVERINE
     Indication: DIARRHOEA
     Dosage: 1 DF (JUST WHEN NEEDED)(START DATE: 10 YEARS AGO)
     Route: 048
  8. DIOVAN [Suspect]
     Active Substance: VALSARTAN
     Dosage: 80 MG, QD (ONCE A DAY (AT NIGHT)(START DATE: 2 YEARS AGO)(STOP DATE: 1 YEAR AGO)
     Route: 048

REACTIONS (3)
  - Blood pressure abnormal [Not Recovered/Not Resolved]
  - Hypertension [Recovered/Resolved]
  - Blood pressure abnormal [Recovered/Resolved]
